FAERS Safety Report 9553945 (Version 6)
Quarter: 2014Q2

REPORT INFORMATION
  Report Type: Report from Study
  Country: US (occurrence: US)
  Receive Date: 20130925
  Receipt Date: 20140401
  Transmission Date: 20141212
  Serious: Yes (Congenital Anomaly, Other)
  Sender: FDA-Public Use
  Company Number: US-TEVA-434179USA

PATIENT
  Sex: Male

DRUGS (6)
  1. RIBAVIRIN [Suspect]
     Route: 065
  2. REYATAZ [Suspect]
     Route: 065
  3. NORVIR [Suspect]
     Route: 065
  4. TRUVADA [Suspect]
     Route: 065
  5. PROVENTIL HFA [Suspect]
     Route: 065
  6. FOLATE SODIUM [Concomitant]
     Route: 064

REACTIONS (1)
  - Deafness congenital [Unknown]
